FAERS Safety Report 25319712 (Version 1)
Quarter: 2025Q2

REPORT INFORMATION
  Report Type: Spontaneous
  Country: DE (occurrence: DE)
  Receive Date: 20250515
  Receipt Date: 20250515
  Transmission Date: 20250717
  Serious: Yes (Other)
  Sender: GILEAD
  Company Number: DE-PEI-202500010358

PATIENT
  Age: 46 Year
  Sex: Female

DRUGS (1)
  1. YESCARTA [Suspect]
     Active Substance: AXICABTAGENE CILOLEUCEL
     Indication: Diffuse large B-cell lymphoma
     Route: 065
     Dates: start: 20241014

REACTIONS (2)
  - Pancytopenia [Recovered/Resolved]
  - Immune effector cell-associated haematotoxicity [Recovered/Resolved]

NARRATIVE: CASE EVENT DATE: 20241105
